FAERS Safety Report 25877756 (Version 2)
Quarter: 2025Q4

REPORT INFORMATION
  Report Type: Spontaneous
  Country: JP (occurrence: JP)
  Receive Date: 20251003
  Receipt Date: 20251110
  Transmission Date: 20260118
  Serious: Yes (Disabling)
  Sender: ABBVIE
  Company Number: JP-ABBVIE-6484593

PATIENT
  Age: 50 Year
  Sex: Female

DRUGS (1)
  1. RINVOQ [Suspect]
     Active Substance: UPADACITINIB
     Indication: Psoriatic arthropathy
     Dosage: FORM STRENGTH: 15 MILLIGRAM
     Route: 048

REACTIONS (1)
  - Ovarian cancer [Recovered/Resolved]

NARRATIVE: CASE EVENT DATE: 20240101
